FAERS Safety Report 15183101 (Version 1)
Quarter: 2018Q3

REPORT INFORMATION
  Report Type: Spontaneous
  Country: US (occurrence: US)
  Receive Date: 20180723
  Receipt Date: 20180723
  Transmission Date: 20181010
  Serious: No
  Sender: FDA-Public Use
  Company Number: US-BAYER-2018-132967

PATIENT
  Sex: Female

DRUGS (8)
  1. BAYER LOW DOSE [Suspect]
     Active Substance: ASPIRIN
     Indication: PAIN
     Dosage: 2 DF, UNK
     Route: 065
  2. BAYER LOW DOSE [Suspect]
     Active Substance: ASPIRIN
     Indication: ARTHRALGIA
  3. PROBIOTICA [Concomitant]
     Active Substance: PROBIOTICS NOS
     Dosage: UNK
  4. ALEVE BACK AND MUSCLE PAIN [Suspect]
     Active Substance: NAPROXEN SODIUM
     Indication: PAIN
     Dosage: 2 DF, QD
     Route: 065
  5. BAYER LOW DOSE [Suspect]
     Active Substance: ASPIRIN
     Indication: SCIATICA
  6. CANNABIDIOL [Concomitant]
     Active Substance: CANNABIDIOL
     Dosage: UNK
  7. BAYER LOW DOSE [Suspect]
     Active Substance: ASPIRIN
     Indication: BACK PAIN
  8. BAYER LOW DOSE [Suspect]
     Active Substance: ASPIRIN
     Indication: PAIN IN EXTREMITY

REACTIONS (4)
  - Drug effect incomplete [Unknown]
  - Drug effect delayed [Unknown]
  - Product use issue [Unknown]
  - Drug ineffective [Unknown]
